FAERS Safety Report 7429072-7 (Version None)
Quarter: 2011Q2

REPORT INFORMATION
  Report Type: 
  Country: None (occurrence: None)
  Receive Date: 20110421
  Receipt Date: 20110413
  Transmission Date: 20111010
  Serious: Yes (Other)
  Sender: FDA-Public Use
  Company Number: US-ROCHE-771329

PATIENT
  Sex: Female

DRUGS (2)
  1. PEGINTERFERON ALFA-2A [Suspect]
     Dates: start: 20090501, end: 20100401
  2. RIBAVIRIN [Suspect]
     Dates: start: 20090501, end: 20100401

REACTIONS (4)
  - HEART RATE DECREASED [None]
  - PRE-ECLAMPSIA [None]
  - LIVE BIRTH [None]
  - PREMATURE LABOUR [None]
